FAERS Safety Report 5971323-X (Version None)
Quarter: 2008Q4

REPORT INFORMATION
  Report Type: 
  Country: None (occurrence: None)
  Receive Date: 20081128
  Receipt Date: 20081120
  Transmission Date: 20090506
  Serious: Yes (Other)
  Sender: FDA-Public Use
  Company Number: JP-PFIZER INC-2008099057

PATIENT
  Age: 63 Year
  Sex: Female

DRUGS (3)
  1. EPIRUBICIN HYDROCHLORIDE [Suspect]
     Indication: BREAST CANCER
  2. CYCLOPHOSPHAMIDE [Suspect]
     Indication: BREAST CANCER
  3. FLUOROURACIL [Suspect]
     Indication: BREAST CANCER
     Route: 042

REACTIONS (1)
  - INTERSTITIAL LUNG DISEASE [None]
